FAERS Safety Report 9630569 (Version 3)
Quarter: 2013Q4

REPORT INFORMATION
  Report Type: Report from Study
  Country: US (occurrence: US)
  Receive Date: 20131018
  Receipt Date: 20131212
  Transmission Date: 20140711
  Serious: No
  Sender: FDA-Public Use
  Company Number: PHEH2013US021529

PATIENT
  Age: 4 Year
  Sex: Female

DRUGS (5)
  1. ILARIS [Suspect]
     Indication: JUVENILE IDIOPATHIC ARTHRITIS
     Dosage: 60 MG, UNK
  2. ILARIS [Suspect]
     Dosage: 150 MG, EVERY 4 WEEKS
     Route: 058
     Dates: start: 20130824
  3. HYDROXYZINE HCL [Concomitant]
     Dosage: 5 ML, UNK
     Route: 048
     Dates: start: 201208
  4. METHOTREXATE SODIUM [Concomitant]
     Dosage: 3 ML, ONCE WEEKLY
     Dates: start: 201209
  5. RANITIDINE HCL [Concomitant]
     Dosage: 5 ML, BID
     Route: 048
     Dates: start: 201208

REACTIONS (5)
  - Juvenile idiopathic arthritis [Unknown]
  - Lymphadenopathy [Recovered/Resolved]
  - Pain [Recovered/Resolved]
  - Pruritus [Recovered/Resolved]
  - Inappropriate schedule of drug administration [Unknown]
